FAERS Safety Report 15801959 (Version 1)
Quarter: 2019Q1

REPORT INFORMATION
  Report Type: Spontaneous
  Country: US (occurrence: US)
  Receive Date: 20190107
  Receipt Date: 20190107
  Transmission Date: 20190417
  Serious: No
  Sender: FDA-Public Use
  Company Number: None

PATIENT

DRUGS (3)
  1. GENTAMICIN SULFATE 0.3% SOL (176F) [Suspect]
     Active Substance: GENTAMICIN SULFATE
     Route: 047
  2. FLUOROMETHOLONE. [Suspect]
     Active Substance: FLUOROMETHOLONE
     Route: 047
  3. LEVOBUNOLOL HCL [Suspect]
     Active Substance: LEVOBUNOLOL HYDROCHLORIDE
     Route: 047

REACTIONS (2)
  - Product packaging confusion [None]
  - Product appearance confusion [None]
